FAERS Safety Report 20076260 (Version 1)
Quarter: 2021Q4

REPORT INFORMATION
  Report Type: Spontaneous
  Country: US (occurrence: None)
  Receive Date: 20211115
  Receipt Date: 20211115
  Transmission Date: 20220303
  Serious: No
  Sender: FDA-Public Use
  Company Number: None

PATIENT
  Age: 9 Year
  Sex: Male

DRUGS (1)
  1. OMEPRAZOLE [Suspect]
     Active Substance: OMEPRAZOLE

REACTIONS (14)
  - Product preparation error [None]
  - Wrong product administered [None]
  - Nausea [None]
  - Vomiting [None]
  - Abdominal pain [None]
  - Odynophagia [None]
  - Dyspepsia [None]
  - Chemical burn [None]
  - Tongue injury [None]
  - Oesophageal injury [None]
  - Oesophageal ulcer [None]
  - Erosive oesophagitis [None]
  - Product dispensing error [None]
  - Incorrect dose administered [None]
